FAERS Safety Report 16241833 (Version 1)
Quarter: 2019Q2

REPORT INFORMATION
  Report Type: Spontaneous
  Country: US (occurrence: US)
  Receive Date: 20190426
  Receipt Date: 20190426
  Transmission Date: 20190711
  Serious: No
  Sender: FDA-Public Use
  Company Number: US-ELI_LILLY_AND_COMPANY-US201904012318

PATIENT
  Sex: Female

DRUGS (1)
  1. TRULICITY [Suspect]
     Active Substance: DULAGLUTIDE
     Indication: GLYCOSYLATED HAEMOGLOBIN DECREASED
     Dosage: UNK UNK, UNKNOWN
     Route: 058
     Dates: start: 201903

REACTIONS (5)
  - Pharyngitis streptococcal [Not Recovered/Not Resolved]
  - Stomatitis [Not Recovered/Not Resolved]
  - Oropharyngeal pain [Not Recovered/Not Resolved]
  - Oropharyngeal discomfort [Not Recovered/Not Resolved]
  - Dysphonia [Not Recovered/Not Resolved]
